FAERS Safety Report 14824248 (Version 1)
Quarter: 2018Q2

REPORT INFORMATION
  Report Type: Spontaneous
  Country: DE (occurrence: DE)
  Receive Date: 20180429
  Receipt Date: 20180429
  Transmission Date: 20180711
  Serious: Yes (Hospitalization)
  Sender: FDA-Public Use
  Company Number: DE-DEXPHARM-20180268

PATIENT
  Age: 75 Year
  Sex: Female

DRUGS (14)
  1. GLIMEPIRID [Concomitant]
     Active Substance: GLIMEPIRIDE
  2. ACETYLSALICYLSAEURE [Concomitant]
     Active Substance: ASPIRIN
  3. SIMVASTATIN. [Concomitant]
     Active Substance: SIMVASTATIN
  4. METOPROLOL. [Suspect]
     Active Substance: METOPROLOL
  5. KALIUMCITRAT [Concomitant]
  6. ISOSORBIDE MONONITRATE. [Suspect]
     Active Substance: ISOSORBIDE MONONITRATE
  7. DIGITOXIN [Concomitant]
     Active Substance: DIGITOXIN
  8. TORASEMID [Suspect]
     Active Substance: TORSEMIDE
  9. METFORMIN [Concomitant]
     Active Substance: METFORMIN HYDROCHLORIDE
     Dosage: 850 MG, 1-0-1-0
  10. PHENPROCOUMON [Concomitant]
     Active Substance: PHENPROCOUMON
  11. RAMIPRIL. [Suspect]
     Active Substance: RAMIPRIL
  12. RANOLAZIN [Concomitant]
  13. INSULIN HUMAN [Concomitant]
     Active Substance: INSULIN HUMAN
  14. XIPAMID [Suspect]
     Active Substance: XIPAMIDE

REACTIONS (2)
  - Fall [Unknown]
  - Fracture [Unknown]
